FAERS Safety Report 4649245-6 (Version None)
Quarter: 2005Q2

REPORT INFORMATION
  Report Type: 
  Country: None (occurrence: None)
  Receive Date: 20050429
  Receipt Date: 20050420
  Transmission Date: 20051028
  Serious: Yes (Other)
  Sender: FDA-Public Use
  Company Number: US-JNJFOC-20050104862

PATIENT
  Sex: Male

DRUGS (6)
  1. REMICADE [Suspect]
     Route: 042
  2. REMICADE [Suspect]
     Indication: RHEUMATOID ARTHRITIS
     Route: 042
  3. METHOTREXATE [Concomitant]
  4. PREDNISONE TAB [Concomitant]
  5. DIOVAN [Concomitant]
  6. PROVACHOL [Concomitant]

REACTIONS (1)
  - MONOCLONAL IMMUNOGLOBULIN PRESENT [None]
